FAERS Safety Report 11418998 (Version 1)
Quarter: 2015Q3

REPORT INFORMATION
  Report Type: Spontaneous
  Country: US (occurrence: None)
  Receive Date: 20150824
  Receipt Date: 20150824
  Transmission Date: 20151125
  Serious: Yes (Hospitalization, Other)
  Sender: FDA-Public Use
  Company Number: ADR-2015-01603

PATIENT
  Age: 28 Year
  Sex: Male

DRUGS (1)
  1. BACLOFEN INTRATHECAL [Suspect]
     Active Substance: BACLOFEN

REACTIONS (7)
  - Medical device site discharge [None]
  - Fatigue [None]
  - Staphylococcal infection [None]
  - Bloody discharge [None]
  - Device issue [None]
  - Impaired healing [None]
  - Device related infection [None]

NARRATIVE: CASE EVENT DATE: 20121126
